FAERS Safety Report 7906230-6 (Version None)
Quarter: 2011Q4

REPORT INFORMATION
  Report Type: 
  Country: None (occurrence: None)
  Receive Date: 20111110
  Receipt Date: 20111031
  Transmission Date: 20120403
  Serious: Yes (Hospitalization)
  Sender: FDA-Public Use
  Company Number: US-BAYER-2011-055442

PATIENT
  Age: 31 Year
  Sex: Female
  Weight: 81.633 kg

DRUGS (16)
  1. NAPROXEN (ALEVE) [Concomitant]
  2. OXYCODONE HCL [Concomitant]
  3. YASMIN [Suspect]
     Dosage: UNK
     Dates: start: 20030101, end: 20090101
  4. ASCORBIC ACID [Concomitant]
  5. NORTRIPTYLINE HCL [Concomitant]
     Indication: MIGRAINE
     Dosage: UNK
     Dates: start: 20070101
  6. EFFEXOR [Concomitant]
     Indication: ANXIETY
  7. MIDRIN [Concomitant]
  8. ACETAMINOPHEN [Concomitant]
  9. IBUPROFEN (ADVIL) [Concomitant]
  10. AMBIEN [Concomitant]
     Indication: SLEEP DISORDER
     Dosage: UNK
     Dates: start: 20090101
  11. DROSPIRENONE AND ETHINYL ESTRADIOL [Suspect]
     Dosage: UNK
     Dates: start: 20030101, end: 20090101
  12. WELCHOL [Concomitant]
     Indication: DYSPEPSIA
     Dosage: UNK
     Dates: start: 20090101
  13. MOTRIN [Concomitant]
  14. EFFEXOR [Concomitant]
     Indication: DEPRESSION
     Dosage: UNK
     Dates: start: 20060101
  15. PROMETHAZINE [Concomitant]
  16. HYOSCYAMINE [Concomitant]

REACTIONS (4)
  - INJURY [None]
  - CHOLELITHIASIS [None]
  - PAIN [None]
  - BILIARY COLIC [None]
